FAERS Safety Report 6465314-2 (Version None)
Quarter: 2009Q4

REPORT INFORMATION
  Report Type: 
  Country: None (occurrence: None)
  Receive Date: 20091201
  Receipt Date: 20090506
  Transmission Date: 20100525
  Serious: No
  Sender: FDA-Public Use
  Company Number: US-AMGEN-KDL269971

PATIENT
  Sex: Female

DRUGS (2)
  1. ENBREL [Suspect]
     Indication: JUVENILE ARTHRITIS
     Route: 058
  2. METHOTREXATE [Concomitant]
     Route: 048

REACTIONS (7)
  - ARTHROPATHY [None]
  - BACK PAIN [None]
  - BEDRIDDEN [None]
  - BONE DISORDER [None]
  - PAIN [None]
  - PAIN IN EXTREMITY [None]
  - TENDON DISORDER [None]
